FAERS Safety Report 15228457 (Version 1)
Quarter: 2018Q3

REPORT INFORMATION
  Report Type: Spontaneous
  Country: US (occurrence: US)
  Receive Date: 20180801
  Receipt Date: 20180801
  Transmission Date: 20181010
  Serious: Yes (Other)
  Sender: FDA-Public Use
  Company Number: US-MYLANLABS-2018M1056849

PATIENT
  Age: 46 Year
  Sex: Female

DRUGS (2)
  1. FLUTICASONE. [Suspect]
     Active Substance: FLUTICASONE
     Indication: ASTHMA
     Dosage: ACTUATION INHALER
     Route: 055
  2. PREDNISONE. [Suspect]
     Active Substance: PREDNISONE
     Indication: HEADACHE
     Dosage: STEROID DOSE PACK
     Route: 065

REACTIONS (6)
  - Pneumothorax [Unknown]
  - Tissue rupture [Unknown]
  - Bronchopulmonary aspergillosis [Unknown]
  - Pleural effusion [Unknown]
  - Aspergilloma [Unknown]
  - Bronchopleural fistula [Unknown]
